FAERS Safety Report 4634205-1 (Version None)
Quarter: 2005Q2

REPORT INFORMATION
  Report Type: 
  Country: None (occurrence: None)
  Receive Date: 20050413
  Receipt Date: 20050404
  Transmission Date: 20051028
  Serious: Yes (Other)
  Sender: FDA-Public Use
  Company Number: BR-JNJFOC-20050402356

PATIENT
  Age: 4 Year
  Weight: 7 kg

DRUGS (2)
  1. CHILDREN'S TYLENOL [Suspect]
  2. CHILDREN'S TYLENOL [Suspect]
     Indication: DRUG USE FOR UNKNOWN INDICATION
     Dosage: ^4,5 ML, 450 MG^

REACTIONS (2)
  - ADVERSE EVENT [None]
  - MEDICATION ERROR [None]
